FAERS Safety Report 22198717 (Version 1)
Quarter: 2023Q2

REPORT INFORMATION
  Report Type: Spontaneous
  Country: CN (occurrence: CN)
  Receive Date: 20230411
  Receipt Date: 20230411
  Transmission Date: 20230722
  Serious: Yes (Life-Threatening, Hospitalization, Other)
  Sender: FDA-Public Use
  Company Number: CN-009507513-2304CHN001665

PATIENT
  Age: 80 Year
  Sex: Male

DRUGS (1)
  1. PEMBROLIZUMAB [Suspect]
     Active Substance: PEMBROLIZUMAB
     Indication: Bladder neoplasm
     Dosage: 200 MG, Q3W FOR 14 CYCLES
     Route: 042

REACTIONS (7)
  - Immune-mediated hypophysitis [Unknown]
  - Immune-mediated hypothyroidism [Recovering/Resolving]
  - Hypopituitarism [Unknown]
  - Pituitary apoplexy [Unknown]
  - Hypogonadism [Unknown]
  - Secondary adrenocortical insufficiency [Unknown]
  - Product use in unapproved indication [Unknown]
